FAERS Safety Report 13264623 (Version 3)
Quarter: 2017Q2

REPORT INFORMATION
  Report Type: Report from Study
  Country: US (occurrence: US)
  Receive Date: 20170223
  Receipt Date: 20170420
  Transmission Date: 20170830
  Serious: Yes (Other)
  Sender: FDA-Public Use
  Company Number: US-AMGEN-USASL2017025618

PATIENT
  Sex: Female

DRUGS (21)
  1. PROLIA [Suspect]
     Active Substance: DENOSUMAB
     Indication: OSTEOPOROSIS POSTMENOPAUSAL
  2. AMOXICILLIN. [Concomitant]
     Active Substance: AMOXICILLIN
     Dosage: UNK UNK, TID
     Route: 048
  3. DYAZIDE [Concomitant]
     Active Substance: HYDROCHLOROTHIAZIDE\TRIAMTERENE
     Dosage: (37.5 TO 25 MG), QD
     Route: 048
  4. PREVACID [Concomitant]
     Active Substance: LANSOPRAZOLE
     Dosage: 15 MG, UNK
  5. CALCIUM CARBONATE AND VITAMIN D [Concomitant]
     Active Substance: CALCIUM CARBONATE\VITAMIN D
     Dosage: UNK UNK, BID
  6. TUMS 500 CALCIUM [Concomitant]
     Dosage: UNK, QD
     Route: 048
  7. NEBUSAL [Concomitant]
     Dosage: UNK UNK, BID
     Route: 045
  8. ZYRTEC [Concomitant]
     Active Substance: CETIRIZINE HYDROCHLORIDE
     Dosage: 10 MG, QD
     Route: 048
  9. ERYTHROMYCIN. [Concomitant]
     Active Substance: ERYTHROMYCIN
     Dosage: 5 MG/GMUNK, UNK
  10. PROLIA [Suspect]
     Active Substance: DENOSUMAB
     Indication: OSTEOPOROSIS
     Dosage: 60 MG, Q6MO
     Route: 058
  11. LESCOL [Concomitant]
     Active Substance: FLUVASTATIN SODIUM
     Dosage: 80 MG, QD
  12. BAYER ASPIRIN [Concomitant]
     Active Substance: ASPIRIN
     Dosage: 81 MG, UNK
  13. FISH OIL [Concomitant]
     Active Substance: FISH OIL
     Dosage: 1200 MG, QD
  14. JUBLIA [Concomitant]
     Active Substance: EFINACONAZOLE
  15. ASTEPRO [Concomitant]
     Active Substance: AZELASTINE HYDROCHLORIDE
     Dosage: UNK UNK, QD
  16. VITAMIN D [Concomitant]
     Active Substance: CHOLECALCIFEROL
     Dosage: 2000 UNIT, QD
     Route: 048
  17. SYMBICORT [Concomitant]
     Active Substance: BUDESONIDE\FORMOTEROL FUMARATE DIHYDRATE
     Dosage: (160-4.5)MUG, UNK
  18. DIFLUCAN [Concomitant]
     Active Substance: FLUCONAZOLE
     Dosage: 150 MG (Q3D), UNK
  19. VENTOLIN HFA [Concomitant]
     Active Substance: ALBUTEROL SULFATE
     Dosage: UNK UNK, Q6H
  20. METOPROLOL SUCCINATE. [Concomitant]
     Active Substance: METOPROLOL SUCCINATE
     Dosage: 50 MG, QD
     Route: 048
  21. ALBUTEROL SULFATE. [Concomitant]
     Active Substance: ALBUTEROL SULFATE
     Dosage: (Q4D)

REACTIONS (42)
  - Otitis media [Unknown]
  - Blood uric acid increased [Unknown]
  - Insomnia [Unknown]
  - Diverticulitis [Unknown]
  - Epicondylitis [Unknown]
  - Eustachian tube dysfunction [Unknown]
  - Vertigo positional [Unknown]
  - Dry skin [Unknown]
  - Essential hypertension [Unknown]
  - Haemorrhoids thrombosed [Unknown]
  - Synovial cyst [Unknown]
  - Bursitis [Unknown]
  - Hyperlipidaemia [Unknown]
  - Neck pain [Unknown]
  - Tobacco abuse [Unknown]
  - Mass [Unknown]
  - Muscle spasms [Unknown]
  - Blepharitis [Unknown]
  - Hiatus hernia [Unknown]
  - Hepatic steatosis [Unknown]
  - Pain in extremity [Unknown]
  - Menopause [Unknown]
  - Type 2 diabetes mellitus [Unknown]
  - Deafness [Unknown]
  - Onychomycosis [Unknown]
  - Change of bowel habit [Unknown]
  - Chronic obstructive pulmonary disease [Unknown]
  - Back disorder [Unknown]
  - Plantar fasciitis [Unknown]
  - Upper-airway cough syndrome [Unknown]
  - Polycythaemia [Unknown]
  - Conjunctivitis allergic [Unknown]
  - Exostosis [Unknown]
  - Rhinitis allergic [Unknown]
  - Hypertriglyceridaemia [Unknown]
  - Gouty arthritis [Unknown]
  - Adrenal disorder [Unknown]
  - Off label use [Unknown]
  - Duodenal ulcer haemorrhage [Unknown]
  - Depression [Unknown]
  - Vitamin D deficiency [Unknown]
  - Lipoma [Unknown]
